FAERS Safety Report 8600551-X (Version None)
Quarter: 2012Q3

REPORT INFORMATION
  Report Type: 
  Country: None (occurrence: None)
  Receive Date: 20120808
  Receipt Date: 20120808
  Transmission Date: 20120928
  Serious: No
  Sender: FDA-Public Use
  Company Number: None

PATIENT
  Age: 64 Year
  Sex: Male
  Weight: 96.1626 kg

DRUGS (4)
  1. PLAVIX [Suspect]
     Indication: STENT PLACEMENT
     Dosage: 75 MG 1 TIME DAILY
  2. ASPIRIN [Suspect]
     Dosage: 81 MG 1 TIME DAILY
  3. LISINOPRIL [Concomitant]
  4. CLOPIDOGREL [Suspect]
     Indication: STENT PLACEMENT

REACTIONS (2)
  - ABDOMINAL PAIN UPPER [None]
  - HAEMATOCHEZIA [None]
